FAERS Safety Report 4318720-6 (Version None)
Quarter: 2004Q1

REPORT INFORMATION
  Report Type: 
  Country: None (occurrence: None)
  Receive Date: 20040317
  Receipt Date: 20040317
  Transmission Date: 20041129
  Serious: Yes (Other)
  Sender: FDA-Public Use
  Company Number: None

PATIENT
  Age: 62 Year
  Sex: Male
  Weight: 96.1626 kg

DRUGS (1)
  1. VANCOMYCIN [Suspect]
     Dosage: X 1
     Dates: start: 20040309

REACTIONS (2)
  - ERYTHEMA [None]
  - PRURITUS [None]
